FAERS Safety Report 11789613 (Version 1)
Quarter: 2015Q4

REPORT INFORMATION
  Report Type: Spontaneous
  Country: BR (occurrence: BR)
  Receive Date: 20151201
  Receipt Date: 20151201
  Transmission Date: 20160305
  Serious: Yes (Hospitalization, Other)
  Sender: FDA-Public Use
  Company Number: PHHY2015BR152370

PATIENT
  Sex: Female

DRUGS (2)
  1. LORAX [Concomitant]
     Active Substance: LORAZEPAM
     Indication: SEIZURE
     Dosage: 4 MG, BID
     Route: 065
  2. SINVASTACOR [Suspect]
     Active Substance: SIMVASTATIN
     Indication: PRODUCT USED FOR UNKNOWN INDICATION
     Route: 065

REACTIONS (6)
  - Multiple fractures [Unknown]
  - Headache [Unknown]
  - Heart rate irregular [Unknown]
  - Cerebral ischaemia [Unknown]
  - Drug ineffective [Unknown]
  - Hypothyroidism [Unknown]
